FAERS Safety Report 10202293 (Version 2)
Quarter: 2014Q2

REPORT INFORMATION
  Report Type: Spontaneous
  Country: US (occurrence: US)
  Receive Date: 20140528
  Receipt Date: 20140528
  Transmission Date: 20141212
  Serious: No
  Sender: FDA-Public Use
  Company Number: US-PFIZER INC-2014073689

PATIENT
  Age: 79 Year
  Sex: Female
  Weight: 118.8 kg

DRUGS (34)
  1. ENBREL [Suspect]
     Indication: ANKYLOSING SPONDYLITIS
     Dosage: 50 MG, WEEKLY
     Route: 058
     Dates: start: 20140220
  2. ENBREL [Suspect]
     Dosage: UNK
     Route: 058
  3. LYRICA [Suspect]
     Dosage: UNK
     Route: 065
  4. TOPAMAX [Suspect]
     Dosage: UNK
     Route: 065
  5. NORTRIPTYLINE [Suspect]
     Dosage: UNK
     Route: 065
  6. ATORVASTATIN CALCIUM [Concomitant]
     Dosage: 40 MG, QD
     Route: 048
  7. METFORMIN [Concomitant]
     Indication: DIABETES MELLITUS
     Dosage: 500 MG, TAKE 2 TABLET BY MOUTH EVERY DAY. TAKE WITH EVENING MEAL
  8. CLONAZEPAM [Concomitant]
     Indication: ANXIETY
     Dosage: 1 MG, TAKE ONE TO TWO TABLETS BY MOUTH DAILY
     Route: 048
  9. GABAPENTIN [Concomitant]
     Dosage: 800 MG, QHS, 2 IN PM, 1 AT HS
     Route: 048
  10. ALPHA LIPOIC ACID [Concomitant]
     Dosage: 600 MG, QD
     Route: 048
  11. CALCIUM CARBONATE AND VITAMIN D [Concomitant]
     Dosage: TAKE 2 CAPSULE BY MOUTH EVERY DAY
     Route: 048
  12. SPIRIVA HANDIHALER [Concomitant]
     Dosage: 18 MUG, QD (ONE CAPSULE BY INHALATION EVERY DAY)
  13. ADVAIR [Concomitant]
     Dosage: 250-50 MCG/DOSE INH INHALER, 1 PUFF BY INHALATION
  14. CELEBREX [Concomitant]
     Dosage: 200 MG, BID
     Route: 048
  15. LISINOPRIL [Concomitant]
     Dosage: 2.5 MG, QD
     Route: 048
  16. ALBUTEROL HFA [Concomitant]
     Dosage: PUFFS BY MOUTH EVERY 4 TO 6 HRS
  17. PROAIR HFA [Concomitant]
     Dosage: INHALE ONE TO TWO PUFFS BY MOUTH EVERY 4 TO 6 HRS AS NEEDED
  18. VOLTAREN [Concomitant]
     Dosage: 1 %, 3 TO 4 TIMES A DAY
  19. OXYCODONE [Concomitant]
     Dosage: 5 MG, TID
     Route: 048
  20. CYMBALTA [Concomitant]
     Dosage: 20 MG, UNK
     Route: 048
  21. FUROSEMIDE [Concomitant]
     Indication: SWELLING
     Dosage: 20 MG, AS NECESSARY
     Route: 048
  22. POTASSIUM CHLORIDE [Concomitant]
     Dosage: 10 MEQ, AS NECESSARY
     Route: 048
  23. PRILOSEC [Concomitant]
     Dosage: 20 MG, QD (TAKE 1/2 HOUR BEFORE A MEAL)
     Route: 048
  24. FLUTICASONE PROPIONATE [Concomitant]
     Indication: HYPERSENSITIVITY
     Dosage: 50 MUG INHALE 1-2 SPRAYS NASALLY EVERYDAY. TAKE 1/2 HR BEFORE MEAL
  25. AMOXICILLIN [Concomitant]
     Dosage: 500 MG, UNK (1 HR PRIOR TO DENTAL WORK)
     Route: 048
  26. VITAMIN D [Concomitant]
     Dosage: 1000 UNIT, BID
     Route: 048
  27. PREMARIN [Concomitant]
     Dosage: 0.625 MG/GM VAGINAL CREAM, 2 TIMES A WEEK AS NEEDED
  28. CLOBETASOL [Concomitant]
     Dosage: 0.05 %, AS NECESSARY
  29. DOCUSATE CALCIUM [Concomitant]
     Dosage: ONE CAPSULE BY MOUTH BID
     Route: 048
  30. MIRALAX [Concomitant]
     Dosage: TAKE 1 CAP BY MOUTH 2 TIMES DAILY
     Route: 048
  31. ASPIRIN [Concomitant]
     Dosage: 81 MG, QD
  32. TRIAMCINOLONE ACETONIDE [Concomitant]
     Dosage: 0.1 %, BID
  33. NITROGLYCERIN [Concomitant]
     Dosage: 0.4 MG, UNK
  34. PRIMROSE OIL [Concomitant]
     Dosage: TAKE 2 TAB BY MOUTH EVERYDAY

REACTIONS (23)
  - Injection site pain [Not Recovered/Not Resolved]
  - Drug ineffective [Not Recovered/Not Resolved]
  - Musculoskeletal stiffness [Unknown]
  - Pain [Unknown]
  - Depression [Unknown]
  - Abdominal pain upper [Unknown]
  - Osteoarthritis [Unknown]
  - Fibromyalgia [Unknown]
  - Neck pain [Unknown]
  - Back pain [Unknown]
  - Arthralgia [Unknown]
  - Intervertebral disc degeneration [Unknown]
  - Arthritis [Unknown]
  - Gait disturbance [Unknown]
  - Hand deformity [Unknown]
  - Pain in extremity [Unknown]
  - Weight increased [Unknown]
  - HLA marker study positive [Unknown]
  - Insomnia [Unknown]
  - Restless legs syndrome [Unknown]
  - Grip strength decreased [Unknown]
  - Joint range of motion decreased [Unknown]
  - Myalgia [Unknown]
